FAERS Safety Report 19098784 (Version 1)
Quarter: 2021Q2

REPORT INFORMATION
  Report Type: Spontaneous
  Country: FR (occurrence: FR)
  Receive Date: 20210406
  Receipt Date: 20210406
  Transmission Date: 20210717
  Serious: Yes (Other)
  Sender: FDA-Public Use
  Company Number: FR-PFIZER INC-2021333304

PATIENT
  Age: 68 Year
  Sex: Male

DRUGS (15)
  1. CEFAZOLINE MYLAN [Suspect]
     Active Substance: CEFAZOLIN SODIUM
     Indication: SURGERY
     Dosage: 3 G, SINGLE
     Route: 042
     Dates: start: 20210305, end: 20210305
  2. LOVENOX [Suspect]
     Active Substance: ENOXAPARIN SODIUM
     Indication: THROMBOSIS PROPHYLAXIS
     Dosage: 4000 IU, 1X/DAY
     Route: 058
     Dates: start: 20210308
  3. ONDANSETRON RENAUDIN [Suspect]
     Active Substance: ONDANSETRON HYDROCHLORIDE
     Indication: SURGERY
     Dosage: 4 MG, SINGLE
     Route: 042
     Dates: start: 20210305, end: 20210305
  4. PROPOFOL LIPURO [Suspect]
     Active Substance: PROPOFOL
     Indication: SURGERY
     Dosage: 3369 MG, SINGLE
     Route: 042
     Dates: start: 20210305, end: 20210305
  5. AUGMENTIN [Suspect]
     Active Substance: AMOXICILLIN\CLAVULANATE POTASSIUM
     Indication: INFECTION
     Dosage: 3 DF, 1X/DAY
     Route: 042
     Dates: start: 20210308, end: 20210313
  6. ATRACURIUM [Concomitant]
     Active Substance: ATRACURIUM
     Indication: SURGERY
     Dosage: 175 MG, 1X/DAY
     Route: 042
     Dates: start: 20210305, end: 20210305
  7. REMIFENTANIL HCL [Concomitant]
     Active Substance: REMIFENTANIL HYDROCHLORIDE
     Indication: SURGERY
     Dosage: 3689 UG, 1X/DAY
     Route: 042
     Dates: start: 20210305, end: 20210305
  8. NORADRENALINE [NOREPINEPHRINE] [Concomitant]
     Active Substance: NOREPINEPHRINE
     Indication: SURGERY
     Dosage: 5 MLFREQ:1 H;
     Dates: start: 20210305, end: 20210305
  9. TRAMADOL HCL [Concomitant]
     Active Substance: TRAMADOL HYDROCHLORIDE
     Indication: SURGERY
     Dosage: 100 MG, 1X/DAY
     Route: 042
     Dates: start: 20210305, end: 20210305
  10. PARACETAMOL [Concomitant]
     Active Substance: ACETAMINOPHEN
     Indication: SURGERY
     Dosage: 1 G, AS NEEDED
     Route: 042
     Dates: start: 20210305, end: 20210305
  11. PREDNISOLONE. [Suspect]
     Active Substance: PREDNISOLONE
     Indication: INFLAMMATION
     Dosage: 40 MG DAILY: (2?0?0)
     Route: 048
     Dates: start: 20210313
  12. EPHEDRINE. [Concomitant]
     Active Substance: EPHEDRINE
     Indication: SURGERY
     Dosage: 12 MG, 1X/DAY
     Route: 042
     Dates: start: 20210305, end: 20210305
  13. METHYLPREDNISOLONE SODIUM SUCCINATE. [Suspect]
     Active Substance: METHYLPREDNISOLONE SODIUM SUCCINATE
     Dosage: 40 MG, 1X/DAY
     Route: 042
     Dates: start: 20210309, end: 20210312
  14. MANNITOL. [Concomitant]
     Active Substance: MANNITOL
     Indication: SURGERY
     Dosage: 300 ML, 1X/DAY
     Route: 042
     Dates: start: 20210305, end: 20210305
  15. DEXAMETHASONE. [Concomitant]
     Active Substance: DEXAMETHASONE
     Indication: SURGERY
     Dosage: 8 MG, 1X/DAY
     Route: 042
     Dates: start: 20210305, end: 20210305

REACTIONS (2)
  - Mixed liver injury [Recovering/Resolving]
  - Jaundice [Recovering/Resolving]

NARRATIVE: CASE EVENT DATE: 20210310
